FAERS Safety Report 18900980 (Version 2)
Quarter: 2021Q1

REPORT INFORMATION
  Report Type: Spontaneous
  Country: US (occurrence: US)
  Receive Date: 20210217
  Receipt Date: 20210223
  Transmission Date: 20210420
  Serious: No
  Sender: FDA-Public Use
  Company Number: US-AMGEN-USASP2021022880

PATIENT
  Age: 70 Year
  Sex: Male
  Weight: 67.8 kg

DRUGS (4)
  1. NPLATE [Suspect]
     Active Substance: ROMIPLOSTIM
     Dosage: 4 MICROGRAM/KILOGRAM (270 MCG), QWK
     Route: 065
     Dates: start: 20210204
  2. NPLATE [Suspect]
     Active Substance: ROMIPLOSTIM
     Indication: IMMUNE THROMBOCYTOPENIA
     Dosage: UNK UNK, QWK
     Route: 065
     Dates: start: 201611
  3. NPLATE [Suspect]
     Active Substance: ROMIPLOSTIM
     Dosage: 3 MICROGRAM PER MILLIGRAM, QWK
     Route: 065
     Dates: start: 2021
  4. NPLATE [Suspect]
     Active Substance: ROMIPLOSTIM
     Dosage: 2.65 MICROGRAM/KILOGRAM, QWK
     Route: 065
     Dates: start: 20210111

REACTIONS (2)
  - Therapeutic response decreased [Unknown]
  - Platelet count decreased [Unknown]

NARRATIVE: CASE EVENT DATE: 202010
